FAERS Safety Report 19555458 (Version 1)
Quarter: 2021Q3

REPORT INFORMATION
  Report Type: Spontaneous
  Country: FR (occurrence: FR)
  Receive Date: 20210714
  Receipt Date: 20210714
  Transmission Date: 20211014
  Serious: Yes (Other)
  Sender: FDA-Public Use
  Company Number: FR-ROCHE-2866728

PATIENT
  Age: 77 Year
  Sex: Female

DRUGS (2)
  1. XELODA [Suspect]
     Active Substance: CAPECITABINE
     Indication: RECTAL ADENOCARCINOMA
     Route: 065
  2. XELODA [Suspect]
     Active Substance: CAPECITABINE
     Route: 065

REACTIONS (3)
  - Peripheral swelling [Not Recovered/Not Resolved]
  - Bone swelling [Not Recovered/Not Resolved]
  - Rash vesicular [Not Recovered/Not Resolved]

NARRATIVE: CASE EVENT DATE: 202010
